FAERS Safety Report 8830377 (Version 1)
Quarter: 2012Q4

REPORT INFORMATION
  Report Type: 
  Country: US (occurrence: US)
  Receive Date: 20121009
  Receipt Date: 20121009
  Transmission Date: 20130627
  Serious: No
  Sender: FDA-Public Use
  Company Number: US-BAYER-2012-103470

PATIENT
  Age: 82 Year
  Sex: Male
  Weight: 86.17 kg

DRUGS (4)
  1. ALEVE CAPLET/TABLET,MIDOL EXTENDED RELIEF CAPLET [Suspect]
     Dosage: 2 DF, QD
     Route: 048
     Dates: start: 20120919
  2. CLONIDINE [Concomitant]
  3. HYDROCHLOROTHIAZIDE [Concomitant]
  4. OMEGA 3 [Concomitant]

REACTIONS (1)
  - Therapeutic response unexpected [None]
